FAERS Safety Report 7055656-4 (Version None)
Quarter: 2010Q4

REPORT INFORMATION
  Report Type: 
  Country: None (occurrence: None)
  Receive Date: 20101021
  Receipt Date: 20101018
  Transmission Date: 20110411
  Serious: Yes (Hospitalization)
  Sender: FDA-Public Use
  Company Number: US-SANOFI-AVENTIS-2010SA063674

PATIENT
  Sex: Male
  Weight: 64.5 kg

DRUGS (12)
  1. DOCETAXEL [Suspect]
     Indication: METASTASES TO LUNG
     Route: 041
     Dates: start: 20101002, end: 20101002
  2. CISPLATIN [Suspect]
     Indication: METASTASES TO LUNG
     Route: 042
     Dates: start: 20101002, end: 20101002
  3. BLINDED THERAPY [Suspect]
     Indication: METASTASES TO LUNG
     Route: 048
     Dates: start: 20101002, end: 20101012
  4. EMEND [Concomitant]
     Indication: NAUSEA
     Route: 048
  5. EMEND [Concomitant]
     Indication: VOMITING
     Route: 048
  6. ZOFRAN [Concomitant]
     Indication: NAUSEA
     Route: 048
  7. ZOFRAN [Concomitant]
     Indication: VOMITING
     Route: 048
  8. DEXAMETHASONE [Concomitant]
     Indication: NAUSEA
     Dosage: DAYS 2, 4 POST CHEMO START 12 HOUR AFTER CHEMO.
     Route: 048
  9. DEXAMETHASONE [Concomitant]
     Indication: VOMITING
     Dosage: DAYS 2, 4 POST CHEMO START 12 HOUR AFTER CHEMO.
     Route: 048
  10. LOPERAMIDE [Concomitant]
     Route: 048
  11. SYNTHROID [Concomitant]
     Indication: HYPOTHYROIDISM
     Route: 048
  12. XANAX [Concomitant]
     Indication: ANXIETY
     Route: 048

REACTIONS (8)
  - DEHYDRATION [None]
  - DIARRHOEA [None]
  - DYSPHAGIA [None]
  - FATIGUE [None]
  - HYPONATRAEMIA [None]
  - ORAL CANDIDIASIS [None]
  - STOMATITIS [None]
  - WEIGHT DECREASED [None]
